FAERS Safety Report 18651272 (Version 2)
Quarter: 2020Q4

REPORT INFORMATION
  Report Type: Spontaneous
  Country: US (occurrence: US)
  Receive Date: 20201223
  Receipt Date: 20201224
  Transmission Date: 20210114
  Serious: No
  Sender: FDA-Public Use
  Company Number: US-TEVA-2020-US-1860564

PATIENT
  Age: 59 Year
  Sex: Female

DRUGS (5)
  1. TYLENOL [Concomitant]
     Active Substance: ACETAMINOPHEN
     Route: 065
  2. HYDROXYCHLOROQUINE SULFATE TEVA [Suspect]
     Active Substance: HYDROXYCHLOROQUINE SULFATE
     Indication: RHEUMATOID ARTHRITIS
  3. HYDROXYCHLOROQUINE SULFATE TEVA [Suspect]
     Active Substance: HYDROXYCHLOROQUINE SULFATE
     Indication: PAIN
     Dosage: 600 MILLIGRAM DAILY;
     Route: 065
     Dates: start: 2016
  4. HYDROXYCHLOROQUINE SULFATE TEVA [Suspect]
     Active Substance: HYDROXYCHLOROQUINE SULFATE
     Indication: SYSTEMIC LUPUS ERYTHEMATOSUS
     Route: 065
     Dates: start: 20201030
  5. HYDROXYCHLOROQUINE SULFATE TEVA [Suspect]
     Active Substance: HYDROXYCHLOROQUINE SULFATE
     Indication: COSTOCHONDRITIS

REACTIONS (7)
  - Loss of personal independence in daily activities [Unknown]
  - Speech disorder [Unknown]
  - Eye disorder [Unknown]
  - Product physical consistency issue [Unknown]
  - Product quality issue [Unknown]
  - Drug ineffective [Unknown]
  - Pain [Unknown]

NARRATIVE: CASE EVENT DATE: 2020
